FAERS Safety Report 8360993-7 (Version None)
Quarter: 2012Q2

REPORT INFORMATION
  Report Type: 
  Country: None (occurrence: None)
  Receive Date: 20120515
  Receipt Date: 20120511
  Transmission Date: 20120825
  Serious: Yes (Hospitalization)
  Sender: FDA-Public Use
  Company Number: FR-B.I. PHARMACEUTICALS,INC./RIDGEFIELD-2012-FF-00568FF

PATIENT
  Sex: Male

DRUGS (4)
  1. INTELENCE [Concomitant]
     Indication: HIV INFECTION CDC CATEGORY A3
     Route: 048
     Dates: start: 20090116
  2. APTIVUS [Suspect]
     Indication: HIV INFECTION CDC CATEGORY A3
     Route: 048
     Dates: start: 20090116, end: 20120109
  3. COMBIVIR [Suspect]
     Indication: HIV INFECTION CDC CATEGORY A3
     Dates: start: 20110923, end: 20120102
  4. NORVIR [Concomitant]
     Indication: HIV INFECTION CDC CATEGORY A3
     Route: 048
     Dates: start: 19970101

REACTIONS (3)
  - ANAEMIA [None]
  - PALLOR [None]
  - DYSPNOEA EXERTIONAL [None]
